FAERS Safety Report 4284024-3 (Version None)
Quarter: 2004Q1

REPORT INFORMATION
  Report Type: 
  Country: None (occurrence: None)
  Receive Date: 20040203
  Receipt Date: 20040116
  Transmission Date: 20041129
  Serious: Yes (Hospitalization, Other)
  Sender: FDA-Public Use
  Company Number: PHBS2004SE00948

PATIENT
  Age: 17 Month
  Sex: Male

DRUGS (1)
  1. TEGRETOL [Suspect]

REACTIONS (14)
  - BALANCE DISORDER [None]
  - DEPRESSED LEVEL OF CONSCIOUSNESS [None]
  - DIARRHOEA [None]
  - DRUG SCREEN POSITIVE [None]
  - DRY SKIN [None]
  - GASTRIC DISORDER [None]
  - HAEMATEMESIS [None]
  - MATERNAL DRUGS AFFECTING FOETUS [None]
  - MEDICATION RESIDUE [None]
  - MENTAL DISORDER [None]
  - MUNCHAUSEN'S SYNDROME [None]
  - POISONING DELIBERATE [None]
  - SKIN WARM [None]
  - SOMNOLENCE [None]
